FAERS Safety Report 7523433-3 (Version None)
Quarter: 2011Q2

REPORT INFORMATION
  Report Type: 
  Country: None (occurrence: None)
  Receive Date: 20110603
  Receipt Date: 20110525
  Transmission Date: 20111010
  Serious: Yes (Life-Threatening, Hospitalization)
  Sender: FDA-Public Use
  Company Number: SE-CELGENEUS-150-C5013-10122377

PATIENT
  Sex: Male
  Weight: 91 kg

DRUGS (22)
  1. PREDNISONE [Suspect]
     Indication: PROSTATE CANCER
     Dosage: 10 MILLIGRAM
     Route: 065
     Dates: start: 20101011
  2. ONDANSETRON [Concomitant]
     Dosage: 4 MILLIGRAM
     Route: 048
     Dates: start: 20101007
  3. CIALIS [Concomitant]
     Indication: ERECTILE DYSFUNCTION
     Dosage: 20 MILLIGRAM
     Route: 048
     Dates: start: 20060321, end: 20101124
  4. LENALIDOMIDE [Suspect]
     Indication: PROSTATE CANCER
     Route: 048
     Dates: start: 20101011
  5. LENALIDOMIDE [Suspect]
     Route: 048
     Dates: start: 20101101, end: 20110105
  6. SUPREFACT [Concomitant]
     Indication: PROSTATE CANCER
     Dosage: .105 MILLIGRAM
     Route: 058
     Dates: start: 20070614
  7. CYANOCOBALAMIN [Concomitant]
     Dosage: 1 MILLIGRAM
     Route: 048
     Dates: start: 20090909
  8. SIMVASTATIN [Concomitant]
     Dosage: 20 MILLIGRAM
     Route: 048
     Dates: start: 20040317
  9. OMEPRAZOLE [Concomitant]
     Indication: GASTRITIS PROPHYLAXIS
     Dosage: 20 MILLIGRAM
     Route: 048
     Dates: start: 20101007
  10. FOLIC ACID [Concomitant]
     Dosage: 5 MILLIGRAM
     Route: 048
     Dates: start: 20090909
  11. SERTRALIN [Concomitant]
     Indication: DEPRESSION
     Dosage: 50 MILLIGRAM
     Route: 048
     Dates: start: 20101125
  12. METOCLOPRAMIDE [Concomitant]
     Dosage: 10 MILLIGRAM
     Route: 048
     Dates: start: 20101007
  13. BENDROFLUMETHIAZIDE [Concomitant]
     Indication: HYPERTENSION
     Dosage: 5 MILLIGRAM
     Route: 048
     Dates: start: 20040317
  14. DALTEPARIN SODIUM [Concomitant]
     Indication: ANXIETY
     Dosage: 50 MILLIGRAM
     Route: 065
     Dates: start: 20101222
  15. DOCETAXEL [Suspect]
     Dosage: 160 MILLIGRAM
     Route: 065
     Dates: start: 20101202, end: 20110105
  16. ATENOLOL [Concomitant]
     Indication: HYPERTENSION
     Dosage: 100 MILLIGRAM
     Route: 048
     Dates: start: 19991221
  17. DIKLOFENAK [Concomitant]
     Indication: GOUT
     Dosage: 50 MILLIGRAM
     Route: 048
     Dates: start: 20010611
  18. PREDNISONE [Suspect]
     Dosage: 10 MILLIGRAM
     Route: 065
     Dates: start: 20101202, end: 20110105
  19. ENALAPRIL MALEATE [Concomitant]
     Indication: HYPERTENSION
     Dosage: 20 MILLIGRAM
     Route: 048
     Dates: start: 20100330
  20. SERTRALIN [Concomitant]
     Indication: ANXIETY
     Dosage: 50 MILLIGRAM
     Route: 065
     Dates: start: 20101222
  21. DOCETAXEL [Suspect]
     Indication: PROSTATE CANCER
     Dosage: 165 MILLIGRAM
     Route: 065
     Dates: start: 20101011
  22. DALTEPARIN SODIUM [Concomitant]
     Indication: PULMONARY EMBOLISM
     Dosage: 18000 IU (INTERNATIONAL UNIT)
     Route: 058
     Dates: start: 20101124

REACTIONS (1)
  - ALVEOLITIS ALLERGIC [None]
